FAERS Safety Report 11183608 (Version 2)
Quarter: 2015Q2

REPORT INFORMATION
  Report Type: Spontaneous
  Country: KR (occurrence: KR)
  Receive Date: 20150612
  Receipt Date: 20150630
  Transmission Date: 20150821
  Serious: Yes (Hospitalization)
  Sender: FDA-Public Use
  Company Number: KR-ROCHE-1592592

PATIENT
  Age: 71 Year
  Sex: Female

DRUGS (1)
  1. BONVIVA [Suspect]
     Active Substance: IBANDRONATE SODIUM
     Indication: PRODUCT USED FOR UNKNOWN INDICATION
     Dosage: ON 11/MAR/2014, 11/JUN/2014, 11/SEP/2014, 11/DEC/2014 AND 11/MAR/2015, SHE RECEIVED SUBSEQUENT DOSES
     Route: 065
     Dates: start: 20131211

REACTIONS (4)
  - Syncope [Recovering/Resolving]
  - Pain [Recovering/Resolving]
  - Upper limb fracture [Recovering/Resolving]
  - Dizziness [Recovering/Resolving]

NARRATIVE: CASE EVENT DATE: 201505
